FAERS Safety Report 7465176-0 (Version None)
Quarter: 2011Q2

REPORT INFORMATION
  Report Type: 
  Country: None (occurrence: None)
  Receive Date: 20110509
  Receipt Date: 20110426
  Transmission Date: 20111010
  Serious: Yes (Life-Threatening, Other)
  Sender: FDA-Public Use
  Company Number: US-JNJFOC-20110208723

PATIENT
  Sex: Female
  Weight: 94 kg

DRUGS (4)
  1. CELL CEPT [Concomitant]
     Indication: PYODERMA GANGRENOSUM
     Route: 065
  2. PREDNISONE [Concomitant]
     Indication: PYODERMA GANGRENOSUM
     Route: 065
  3. REMICADE [Suspect]
     Indication: PYODERMA GANGRENOSUM
     Route: 042
  4. HUMIRA [Concomitant]
     Indication: PYODERMA GANGRENOSUM
     Route: 065

REACTIONS (1)
  - BREAST CANCER METASTATIC [None]
